FAERS Safety Report 8173457 (Version 5)
Quarter: 2013Q4

REPORT INFORMATION
  Report Type: Spontaneous
  Country: PR (occurrence: US)
  Receive Date: 20111008
  Receipt Date: 20131025
  Transmission Date: 20140711
  Serious: Yes (Other)
  Sender: FDA-Public Use
  Company Number: US-ASTRAZENECA-2011SE58430

PATIENT
  Age: 667 Month
  Sex: Female
  Weight: 63.5 kg

DRUGS (17)
  1. SEROQUEL [Suspect]
     Indication: BIPOLAR I DISORDER
     Route: 048
  2. SEROQUEL [Suspect]
     Indication: MAJOR DEPRESSION
     Route: 048
  3. SEROQUEL [Suspect]
     Indication: BIPOLAR I DISORDER
     Route: 048
  4. SEROQUEL [Suspect]
     Indication: MAJOR DEPRESSION
     Route: 048
  5. SEROQUEL [Suspect]
     Indication: BIPOLAR I DISORDER
     Route: 048
     Dates: start: 2011
  6. SEROQUEL [Suspect]
     Indication: MAJOR DEPRESSION
     Route: 048
     Dates: start: 2011
  7. SEROQUEL [Suspect]
     Indication: BIPOLAR I DISORDER
     Dosage: HS
     Route: 048
     Dates: start: 2011, end: 2013
  8. SEROQUEL [Suspect]
     Indication: MAJOR DEPRESSION
     Dosage: HS
     Route: 048
     Dates: start: 2011, end: 2013
  9. SEROQUEL [Suspect]
     Indication: BIPOLAR I DISORDER
     Route: 048
  10. SEROQUEL [Suspect]
     Indication: MAJOR DEPRESSION
     Route: 048
  11. SEROQUEL [Suspect]
     Indication: BIPOLAR I DISORDER
     Route: 048
     Dates: start: 2013
  12. SEROQUEL [Suspect]
     Indication: MAJOR DEPRESSION
     Route: 048
     Dates: start: 2013
  13. DEPAKOTE [Concomitant]
     Indication: BALANCE DISORDER
  14. DEPAKOTE [Concomitant]
     Indication: CONVULSION
  15. CELEXA [Concomitant]
     Indication: ANXIETY
  16. CELEXA [Concomitant]
     Indication: DEPRESSED MOOD
  17. PRONOPIN [Concomitant]

REACTIONS (15)
  - Breast mass [Unknown]
  - Neoplasm malignant [Unknown]
  - Thyroid disorder [Unknown]
  - Depression [Unknown]
  - Adverse event [Unknown]
  - Feeling abnormal [Unknown]
  - Insomnia [Unknown]
  - Nasopharyngitis [Unknown]
  - Panic attack [Unknown]
  - Weight abnormal [Unknown]
  - Stress [Unknown]
  - Heart rate abnormal [Unknown]
  - Therapeutic response unexpected [Not Recovered/Not Resolved]
  - Drug dose omission [Unknown]
  - Intentional drug misuse [Unknown]
